FAERS Safety Report 9425393 (Version 3)
Quarter: 2013Q3

REPORT INFORMATION
  Report Type: Report from Study
  Country: JP (occurrence: JP)
  Receive Date: 20130729
  Receipt Date: 20130925
  Transmission Date: 20140515
  Serious: Yes (Hospitalization, Other)
  Sender: FDA-Public Use
  Company Number: JP-GILEAD-2013-0079928

PATIENT
  Age: 55 Year
  Sex: Male

DRUGS (4)
  1. EMTRICITABINE/TENOFOVIR DISOPROXIL FUMARATE [Suspect]
     Indication: HIV INFECTION
     Dosage: 1 DF, QD
     Route: 048
     Dates: start: 20070125
  2. STOCRIN [Concomitant]
     Indication: HIV INFECTION
     Dosage: 600 MG, QD
     Route: 048
     Dates: start: 20050401
  3. ALFACALCIDOL [Concomitant]
  4. MINODRONIC ACID [Concomitant]

REACTIONS (2)
  - Spinal compression fracture [Recovered/Resolved]
  - Osteoporosis [Recovered/Resolved]
